FAERS Safety Report 19995976 (Version 2)
Quarter: 2021Q4

REPORT INFORMATION
  Report Type: Report from Study
  Country: AU (occurrence: AU)
  Receive Date: 20211025
  Receipt Date: 20211102
  Transmission Date: 20220303
  Serious: Yes (Death, Other)
  Sender: FDA-Public Use
  Company Number: AU-BRISTOL-MYERS SQUIBB COMPANY-BMS-2021-043099

PATIENT
  Age: 57 Year
  Sex: Female
  Weight: 53 kg

DRUGS (14)
  1. NIVOLUMAB [Suspect]
     Active Substance: NIVOLUMAB
     Indication: Renal cell carcinoma
     Dosage: 77 MILLILITER
     Route: 042
     Dates: start: 20200528, end: 20201029
  2. IPILIMUMAB [Suspect]
     Active Substance: IPILIMUMAB
     Indication: Renal cell carcinoma
     Dosage: 10.6 MILLILITER
     Route: 042
     Dates: start: 20200528, end: 20201001
  3. PANADOL [Concomitant]
     Active Substance: ACETAMINOPHEN
     Indication: Product used for unknown indication
     Dosage: 1000 MILLIGRAM
     Route: 048
     Dates: start: 20200212
  4. TEMAZEPAM [Concomitant]
     Active Substance: TEMAZEPAM
     Indication: Insomnia
     Dosage: 10 MILLIGRAM
     Route: 048
     Dates: start: 20200611
  5. VITAMIN C [Concomitant]
     Active Substance: ASCORBIC ACID
     Indication: Product used for unknown indication
     Dosage: 500 MILLIGRAM
     Route: 048
     Dates: start: 20201229
  6. APIXABAN [Concomitant]
     Active Substance: APIXABAN
     Indication: Panic attack
     Dosage: 5 MILLIGRAM
     Route: 048
     Dates: start: 20201229
  7. ATENOLOL [Concomitant]
     Active Substance: ATENOLOL
     Indication: Panic attack
     Dosage: 25 MILLIGRAM
     Route: 048
     Dates: start: 20201229
  8. VITAMINS NOS [Concomitant]
     Active Substance: VITAMINS
     Indication: Product used for unknown indication
     Dosage: 1 DOSAGE FORM - 1 UNIT NOS
     Route: 048
     Dates: start: 20201229
  9. CHOLECALCIFEROL [Concomitant]
     Active Substance: CHOLECALCIFEROL
     Indication: Product used for unknown indication
     Dosage: 1 DOSAGE FORM=1000 UNIT NOS
     Route: 048
     Dates: start: 20201229
  10. MAGNESIUM ASPARTATE [Concomitant]
     Active Substance: MAGNESIUM ASPARTATE
     Indication: Product used for unknown indication
     Dosage: 500 MILLIGRAM
     Route: 048
     Dates: start: 20201229
  11. PREDNISOLONE [Concomitant]
     Active Substance: PREDNISOLONE
     Indication: Adrenal insufficiency
     Dosage: 5 MILLIGRAM
     Route: 048
     Dates: start: 20201229
  12. PREDNISOLONE [Concomitant]
     Active Substance: PREDNISOLONE
     Indication: Anxiety
  13. MAGNESIUM ASPARTATE DIHYDRATE [Concomitant]
     Active Substance: MAGNESIUM ASPARTATE DIHYDRATE
     Indication: Product used for unknown indication
     Dosage: 1 DOSAGE FORM - 1 UNIT NOS
     Route: 048
     Dates: start: 20201229
  14. MYADEC [ASCORBIC ACID;BIOTIN;CALCIUM PANTOTHENATE;CYANOCOBALAMIN;ERGOC [Concomitant]
     Indication: Product used for unknown indication
     Dosage: 1 DOSAGE FORM - 1 UNIT NOS
     Route: 048
     Dates: start: 20201229

REACTIONS (1)
  - Cardiac arrest [Fatal]

NARRATIVE: CASE EVENT DATE: 20210426
